FAERS Safety Report 25225157 (Version 1)
Quarter: 2025Q2

REPORT INFORMATION
  Report Type: Spontaneous
  Country: US (occurrence: US)
  Receive Date: 20250422
  Receipt Date: 20250422
  Transmission Date: 20250717
  Serious: No
  Sender: HIKMA
  Company Number: US-HIKMA PHARMACEUTICALS USA INC.-US-H14001-24-07049

PATIENT
  Sex: Female

DRUGS (2)
  1. DIAZEPAM INTENSOL [Suspect]
     Active Substance: DIAZEPAM
     Indication: Seizure
     Route: 065
  2. DIAZEPAM INTENSOL [Suspect]
     Active Substance: DIAZEPAM
     Route: 065

REACTIONS (1)
  - Sudden onset of sleep [Unknown]
